FAERS Safety Report 19264068 (Version 1)
Quarter: 2021Q2

REPORT INFORMATION
  Report Type: Spontaneous
  Country: US (occurrence: US)
  Receive Date: 20210515
  Receipt Date: 20210515
  Transmission Date: 20210717
  Serious: Yes (Life-Threatening, Disabling)
  Sender: FDA-Public Use
  Company Number: None

PATIENT
  Age: 62 Year
  Sex: Female
  Weight: 74.25 kg

DRUGS (4)
  1. ZOLOFT [Concomitant]
     Active Substance: SERTRALINE HYDROCHLORIDE
  2. TRIIODOTHYRONINE [Concomitant]
     Active Substance: LIOTHYRONINE SODIUM
  3. LIOTHYRONINE NA 5 MCG [Suspect]
     Active Substance: LIOTHYRONINE SODIUM
     Indication: THYROID HORMONE REPLACEMENT THERAPY
     Dosage: ?          QUANTITY:45 TABLET(S);?
     Route: 048
     Dates: end: 20200901
  4. SYNTHROID [Concomitant]
     Active Substance: LEVOTHYROXINE SODIUM

REACTIONS (4)
  - Product substitution issue [None]
  - Atrial fibrillation [None]
  - Anxiety [None]
  - Tremor [None]

NARRATIVE: CASE EVENT DATE: 20200505
